FAERS Safety Report 23707632 (Version 2)
Quarter: 2024Q4

REPORT INFORMATION
  Report Type: Spontaneous
  Country: US (occurrence: US)
  Receive Date: 20240404
  Receipt Date: 20241126
  Transmission Date: 20250115
  Serious: Yes (Other)
  Sender: BIOMARIN
  Company Number: US-SA-2024SA097565

PATIENT

DRUGS (3)
  1. ALDURAZYME [Suspect]
     Active Substance: LARONIDASE
     Indication: Mucopolysaccharidosis I
     Dosage: 14.5 MG, QW
     Route: 042
     Dates: start: 201612
  2. ALDURAZYME [Suspect]
     Active Substance: LARONIDASE
     Dosage: 17.4 MG, QW
     Route: 042
  3. ALDURAZYME [Suspect]
     Active Substance: LARONIDASE
     Dosage: 17.4 MG, Q4D
     Route: 042

REACTIONS (2)
  - Seizure [Unknown]
  - Intentional product misuse [Unknown]

NARRATIVE: CASE EVENT DATE: 20240317
